FAERS Safety Report 4504443-7 (Version None)
Quarter: 2004Q4

REPORT INFORMATION
  Report Type: 
  Country: None (occurrence: None)
  Receive Date: 20041116
  Receipt Date: 20041110
  Transmission Date: 20050328
  Serious: Yes (Hospitalization)
  Sender: FDA-Public Use
  Company Number: USA041082188

PATIENT
  Age: 70 Year
  Sex: Female

DRUGS (3)
  1. FORTEO [Suspect]
     Dates: start: 20040928
  2. REMICADE [Concomitant]
  3. PLAQUENIL [Concomitant]

REACTIONS (3)
  - BALANCE DISORDER [None]
  - DELIRIUM [None]
  - PYREXIA [None]
